FAERS Safety Report 16694779 (Version 2)
Quarter: 2019Q3

REPORT INFORMATION
  Report Type: Report from Study
  Country: US (occurrence: US)
  Receive Date: 20190812
  Receipt Date: 20190823
  Transmission Date: 20191004
  Serious: Yes (Hospitalization)
  Sender: FDA-Public Use
  Company Number: US-EXELIXIS-CABO-19022216

PATIENT
  Age: 82 Year
  Sex: Male

DRUGS (3)
  1. CABOMETYX [Suspect]
     Active Substance: CABOZANTINIB S-MALATE
     Dosage: 40 MG, QD  (WITHOUT FOOD)(TWO TABLETS OF 20 MG)
     Dates: start: 20190701, end: 201907
  2. CABOMETYX [Suspect]
     Active Substance: CABOZANTINIB S-MALATE
     Dosage: 40 MG, QD
     Dates: end: 201908
  3. CABOMETYX [Suspect]
     Active Substance: CABOZANTINIB S-MALATE
     Indication: RENAL CANCER
     Dosage: 20 MG, QD  (WITHOUT FOOD)
     Dates: start: 20190607, end: 201906

REACTIONS (4)
  - Pharyngeal swelling [Unknown]
  - Constipation [Recovered/Resolved]
  - Dysphagia [Unknown]
  - Pyrexia [Unknown]

NARRATIVE: CASE EVENT DATE: 201906
